FAERS Safety Report 8525559-4 (Version None)
Quarter: 2012Q3

REPORT INFORMATION
  Report Type: 
  Country: None (occurrence: None)
  Receive Date: 20120720
  Receipt Date: 20120713
  Transmission Date: 20120928
  Serious: No
  Sender: FDA-Public Use
  Company Number: US-009507513-1207USA005339

PATIENT

DRUGS (1)
  1. COZAAR [Suspect]
     Dosage: 50 MG, BID
     Route: 048
     Dates: end: 20100601

REACTIONS (3)
  - BLOOD PRESSURE INCREASED [None]
  - FEELING ABNORMAL [None]
  - WEIGHT INCREASED [None]
